FAERS Safety Report 9437404 (Version 1)
Quarter: 2013Q3

REPORT INFORMATION
  Report Type: Spontaneous
  Country: BR (occurrence: BR)
  Receive Date: 20130802
  Receipt Date: 20130802
  Transmission Date: 20140515
  Serious: Yes (Hospitalization)
  Sender: FDA-Public Use
  Company Number: BR-BAYER-2013-049023

PATIENT
  Age: 61 Year
  Sex: Female

DRUGS (1)
  1. ULTRAVIST [Suspect]
     Indication: UROGRAM
     Dosage: UNK
     Route: 042
     Dates: start: 20130416, end: 20130416

REACTIONS (7)
  - Dyspnoea [Recovered/Resolved]
  - Chest pain [Recovered/Resolved]
  - Back pain [Recovered/Resolved]
  - Speech disorder [Recovered/Resolved]
  - Refraction disorder [Not Recovered/Not Resolved]
  - Vision blurred [Not Recovered/Not Resolved]
  - Vertigo [Recovered/Resolved]
